FAERS Safety Report 9824965 (Version 1)
Quarter: 2014Q1

REPORT INFORMATION
  Report Type: Spontaneous
  Country: US (occurrence: US)
  Receive Date: 20140117
  Receipt Date: 20140117
  Transmission Date: 20141002
  Serious: Yes (Hospitalization)
  Sender: FDA-Public Use
  Company Number: US-JNJFOC-20140102003

PATIENT
  Age: 16 Year
  Sex: Female

DRUGS (1)
  1. ORTHO TRI-CYCLEN LO [Suspect]
     Indication: PREMENSTRUAL SYNDROME
     Route: 048

REACTIONS (4)
  - Depressed mood [Recovered/Resolved]
  - Drug dose omission [Unknown]
  - Premenstrual syndrome [Recovered/Resolved]
  - Off label use [Unknown]
